FAERS Safety Report 11896332 (Version 1)
Quarter: 2016Q1

REPORT INFORMATION
  Report Type: Spontaneous
  Country: US (occurrence: US)
  Receive Date: 20160107
  Receipt Date: 20160107
  Transmission Date: 20160526
  Serious: No
  Sender: FDA-Public Use
  Company Number: US-ROCHE-1619484

PATIENT
  Age: 70 Year
  Sex: Male

DRUGS (8)
  1. GAZYVA [Suspect]
     Active Substance: OBINUTUZUMAB
     Dosage: DOSE: 1000
     Route: 041
     Dates: start: 20150716
  2. GAZYVA [Suspect]
     Active Substance: OBINUTUZUMAB
     Dosage: DOSE: 1000
     Route: 041
     Dates: start: 20150806
  3. BENADRYL [Concomitant]
     Active Substance: DIPHENHYDRAMINE HYDROCHLORIDE
  4. GAZYVA [Suspect]
     Active Substance: OBINUTUZUMAB
     Dosage: DOSE: 200
     Route: 041
     Dates: start: 20150710
  5. ACYCLOVIR. [Concomitant]
     Active Substance: ACYCLOVIR
     Route: 065
  6. GAZYVA [Suspect]
     Active Substance: OBINUTUZUMAB
     Indication: CHRONIC LYMPHOCYTIC LEUKAEMIA
     Dosage: DOSE: 100
     Route: 041
     Dates: start: 20150709
  7. BACTRIM [Concomitant]
     Active Substance: SULFAMETHOXAZOLE\TRIMETHOPRIM
     Route: 065
  8. GAZYVA [Suspect]
     Active Substance: OBINUTUZUMAB
     Dosage: DOSE: 1000
     Route: 041
     Dates: start: 20150723

REACTIONS (8)
  - Tremor [Recovered/Resolved]
  - Vision blurred [Not Recovered/Not Resolved]
  - Nasopharyngitis [Recovered/Resolved]
  - Ocular hyperaemia [Not Recovered/Not Resolved]
  - Erythema [Recovered/Resolved]
  - Feeling abnormal [Recovered/Resolved]
  - Rash [Not Recovered/Not Resolved]
  - Flushing [Not Recovered/Not Resolved]

NARRATIVE: CASE EVENT DATE: 20150709
